FAERS Safety Report 15042252 (Version 1)
Quarter: 2018Q2

REPORT INFORMATION
  Report Type: Spontaneous
  Country: IT (occurrence: IT)
  Receive Date: 20180621
  Receipt Date: 20180621
  Transmission Date: 20180711
  Serious: Yes (Life-Threatening, Hospitalization)
  Sender: FDA-Public Use
  Company Number: IT-WEST-WARD PHARMACEUTICALS CORP.-IT-H14001-18-05096

PATIENT
  Age: 51 Year
  Sex: Female

DRUGS (4)
  1. LIMICAN 50 MG/2 ML [Concomitant]
     Indication: PRODUCT USED FOR UNKNOWN INDICATION
     Dosage: ()
     Route: 065
  2. CYCLOPHOSPHAMIDE. [Suspect]
     Active Substance: CYCLOPHOSPHAMIDE
     Indication: BREAST CANCER
     Dosage: CYCLICAL
     Route: 042
     Dates: start: 20160213, end: 20180213
  3. DEXAMETHASONE. [Concomitant]
     Active Substance: DEXAMETHASONE
     Indication: PRODUCT USED FOR UNKNOWN INDICATION
     Dosage: ()
     Route: 065
  4. DOXORUBICIN HYDROCHLORIDE. [Suspect]
     Active Substance: DOXORUBICIN HYDROCHLORIDE
     Indication: BREAST CANCER
     Dosage: CYCLICAL
     Route: 040
     Dates: start: 20160213, end: 20160213

REACTIONS (4)
  - Systemic inflammatory response syndrome [Recovering/Resolving]
  - Febrile neutropenia [Recovering/Resolving]
  - Sepsis [Recovering/Resolving]
  - Lymphangitis [Recovering/Resolving]

NARRATIVE: CASE EVENT DATE: 20180226
